FAERS Safety Report 20368340 (Version 2)
Quarter: 2022Q1

REPORT INFORMATION
  Report Type: Spontaneous
  Country: DE (occurrence: DE)
  Receive Date: 20220124
  Receipt Date: 20220127
  Transmission Date: 20220424
  Serious: Yes (Death, Other)
  Sender: FDA-Public Use
  Company Number: DE-BoehringerIngelheim-2022-BI-108043

PATIENT
  Age: 77 Year
  Sex: Female
  Weight: 48 kg

DRUGS (2)
  1. PRAXBIND [Suspect]
     Active Substance: IDARUCIZUMAB
     Indication: Procoagulant therapy
     Dosage: TWO-TIME ADMINISTRATION
  2. PRAXBIND [Suspect]
     Active Substance: IDARUCIZUMAB
     Indication: Interventional procedure
     Route: 042
     Dates: start: 20220113, end: 20220114

REACTIONS (4)
  - Death [Fatal]
  - Colitis ischaemic [Unknown]
  - Sepsis [Unknown]
  - Haemorrhagic diathesis [Recovered/Resolved]

NARRATIVE: CASE EVENT DATE: 20220113
